FAERS Safety Report 17521340 (Version 1)
Quarter: 2020Q1

REPORT INFORMATION
  Report Type: Spontaneous
  Country: US (occurrence: US)
  Receive Date: 20200310
  Receipt Date: 20200310
  Transmission Date: 20200409
  Serious: Yes (Other)
  Sender: FDA-Public Use
  Company Number: None

PATIENT
  Age: 24 Year
  Sex: Female
  Weight: 53.55 kg

DRUGS (2)
  1. HYDROCORTISONE. [Suspect]
     Active Substance: HYDROCORTISONE
     Indication: RASH
  2. TRIAMCINOLONE [Suspect]
     Active Substance: TRIAMCINOLONE

REACTIONS (9)
  - Skin erosion [None]
  - Erythema [None]
  - Eczema [None]
  - Impaired work ability [None]
  - Exposure during pregnancy [None]
  - Pruritus [None]
  - Rash [None]
  - Skin exfoliation [None]
  - Movement disorder [None]

NARRATIVE: CASE EVENT DATE: 20191121
